APPROVED DRUG PRODUCT: CHLORHEXIDINE GLUCONATE
Active Ingredient: CHLORHEXIDINE GLUCONATE
Strength: 4%
Dosage Form/Route: SPONGE;TOPICAL
Application: N019490 | Product #001
Applicant: KENDALL CO
Approved: Mar 27, 1987 | RLD: No | RS: No | Type: DISCN